FAERS Safety Report 6457717-7 (Version None)
Quarter: 2009Q4

REPORT INFORMATION
  Report Type: 
  Country: None (occurrence: None)
  Receive Date: 20091125
  Receipt Date: 20091119
  Transmission Date: 20100525
  Serious: Yes (Hospitalization, Other)
  Sender: FDA-Public Use
  Company Number: US-PFIZER INC-2009301280

PATIENT
  Age: 54 Year
  Sex: Male

DRUGS (2)
  1. ATORVASTATIN [Suspect]
     Dosage: 10 MG, 1X/DAY
  2. METFORMIN [Concomitant]
     Dosage: 1500 MG, 1X/DAY
     Dates: start: 20070101

REACTIONS (2)
  - HEPATITIS [None]
  - JAUNDICE [None]
